FAERS Safety Report 24388672 (Version 1)
Quarter: 2024Q4

REPORT INFORMATION
  Report Type: Spontaneous
  Country: JP (occurrence: JP)
  Receive Date: 20241002
  Receipt Date: 20241002
  Transmission Date: 20250115
  Serious: Yes (Other)
  Sender: PFIZER
  Company Number: JP-PFIZER INC-202400266130

PATIENT
  Sex: Female

DRUGS (2)
  1. AZITHROMYCIN DIHYDRATE [Suspect]
     Active Substance: AZITHROMYCIN DIHYDRATE
     Indication: Pelvic inflammatory disease
     Dosage: 1000 MG, SINGLE
     Route: 048
  2. AZITHROMYCIN DIHYDRATE [Suspect]
     Active Substance: AZITHROMYCIN DIHYDRATE
     Dosage: 1000 MG, SINGLE, SECOND DOSE
     Route: 048

REACTIONS (2)
  - Hepatic infection bacterial [Unknown]
  - Off label use [Unknown]
